FAERS Safety Report 21524477 (Version 1)
Quarter: 2022Q4

REPORT INFORMATION
  Report Type: Report from Study
  Country: GB (occurrence: GB)
  Receive Date: 20221029
  Receipt Date: 20221029
  Transmission Date: 20230113
  Serious: Yes (Congenital Anomaly, Other)
  Sender: FDA-Public Use
  Company Number: GB-MYLANLABS-2022M1113751

PATIENT
  Sex: Female

DRUGS (6)
  1. EMTRICITABINE\TENOFOVIR DISOPROXIL [Suspect]
     Active Substance: EMTRICITABINE\TENOFOVIR DISOPROXIL
     Indication: HIV infection
     Dosage: 1 DOSAGE FORMS DAILY; 1 TAB/CAPS, THERAPY END DATE : NOT ASKED, UNIT DOSE : 1 DOSAGE FORMS, FREQUENC
     Route: 064
     Dates: start: 20210719
  2. ISENTRESS [Suspect]
     Active Substance: RALTEGRAVIR POTASSIUM
     Indication: HIV infection
     Dosage: 800 MILLIGRAM DAILY; UNIT DOSE : 800 MG, FREQUENCY ; 1 , FREQUENCY TIME : 1 DAYS, THERAPY DURATION :
     Route: 064
     Dates: start: 20210719, end: 20211228
  3. RITONAVIR [Suspect]
     Active Substance: RITONAVIR
     Indication: HIV infection
     Dosage: 100 MILLIGRAM DAILY; THERAPY END DATE : NOT ASKED, UNIT DOSE : 100 MG, FREQUENCY ; 1 , FREQUENCY TIM
     Route: 064
     Dates: start: 20211229
  4. REYATAZ [Suspect]
     Active Substance: ATAZANAVIR SULFATE
     Indication: HIV infection
     Dosage: 300 MILLIGRAM DAILY; THERAPY END DATE : NOT ASKED, UNIT DOSE :  300 MG, FREQUENCY ; 1 , FREQUENCY TI
     Route: 064
     Dates: start: 20211229
  5. STRIBILD [Suspect]
     Active Substance: COBICISTAT\ELVITEGRAVIR\EMTRICITABINE\TENOFOVIR DISOPROXIL FUMARATE
     Indication: HIV infection
     Dosage: 1 DOSAGE FORMS DAILY; 1 TAB/CAPS, THERAPY START DATE : NOT ASKED, UNIT DOSE : 1 DOSAGE FORMS, FREQUE
     Route: 064
     Dates: end: 20210718
  6. TIVICAY [Suspect]
     Active Substance: DOLUTEGRAVIR SODIUM
     Indication: HIV infection
     Dosage: 50 MILLIGRAM DAILY; THERAPY END DATE : NOT ASKED, UNIT DOSE : 50 MG,  FREQUENCY ; 1 , FREQUENCY TIME
     Route: 064
     Dates: start: 20220125

REACTIONS (2)
  - Renal dysplasia [Unknown]
  - Foetal exposure during pregnancy [Unknown]
